FAERS Safety Report 4938051-0 (Version None)
Quarter: 2006Q1

REPORT INFORMATION
  Report Type: 
  Country: None (occurrence: None)
  Receive Date: 20060309
  Receipt Date: 20050803
  Transmission Date: 20060701
  Serious: No
  Sender: FDA-Public Use
  Company Number: US-BRISTOL-MYERS SQUIBB COMPANY-13128889

PATIENT
  Age: 50 Year
  Sex: Female

DRUGS (6)
  1. MONISTAT-1 VAG OINT 6.5% [Suspect]
     Indication: VULVOVAGINAL MYCOTIC INFECTION
     Route: 067
     Dates: start: 20050731, end: 20050731
  2. INSULIN [Concomitant]
  3. GLUCOPHAGE [Concomitant]
  4. GLUCOTROL [Concomitant]
  5. LEXAPRO [Concomitant]
  6. HYPERTENSION MEDICATION [Concomitant]

REACTIONS (1)
  - DRUG INEFFECTIVE [None]
